FAERS Safety Report 17096206 (Version 1)
Quarter: 2019Q4

REPORT INFORMATION
  Report Type: Spontaneous
  Country: IN (occurrence: IN)
  Receive Date: 20191202
  Receipt Date: 20191202
  Transmission Date: 20200122
  Serious: Yes (Hospitalization, Other)
  Sender: FDA-Public Use
  Company Number: IN-LUPIN PHARMACEUTICALS INC.-2019-07718

PATIENT
  Age: 4 Year
  Sex: Female

DRUGS (1)
  1. DOXYCYCLINE. [Suspect]
     Active Substance: DOXYCYCLINE
     Indication: CONJUNCTIVITIS
     Dosage: UNK
     Route: 065
     Dates: start: 2017, end: 2017

REACTIONS (4)
  - Tooth discolouration [Recovering/Resolving]
  - Photosensitivity reaction [Recovering/Resolving]
  - Photoonycholysis [Unknown]
  - Butterfly rash [Recovering/Resolving]

NARRATIVE: CASE EVENT DATE: 201711
